FAERS Safety Report 8084883-2 (Version None)
Quarter: 2012Q1

REPORT INFORMATION
  Report Type: 
  Country: None (occurrence: None)
  Receive Date: 20120128
  Receipt Date: 20110318
  Transmission Date: 20120608
  Serious: No
  Sender: FDA-Public Use
  Company Number: US-ABBOTT-11P-163-0712924-00

PATIENT
  Age: 61 Year
  Sex: Male

DRUGS (5)
  1. HUMIRA [Suspect]
     Indication: PSORIASIS
     Dates: start: 20110311
  2. PREDNISONE TAB [Concomitant]
     Indication: PRODUCT USED FOR UNKNOWN INDICATION
  3. SIMVASTATIN [Concomitant]
     Indication: BLOOD CHOLESTEROL INCREASED
  4. DIOVAN [Concomitant]
     Indication: BLOOD CHOLESTEROL INCREASED
     Dosage: 80/12.5MG
  5. METOPROLOL TARTRATE [Concomitant]
     Indication: HYPERTENSION

REACTIONS (1)
  - JOINT SWELLING [None]
